FAERS Safety Report 23103590 (Version 1)
Quarter: 2023Q4

REPORT INFORMATION
  Report Type: Report from Study
  Country: CA (occurrence: CA)
  Receive Date: 20231025
  Receipt Date: 20231025
  Transmission Date: 20240109
  Serious: Yes (Other)
  Sender: FDA-Public Use
  Company Number: CA-ABBVIE-5459119

PATIENT
  Age: 45 Year
  Sex: Male

DRUGS (1)
  1. HUMIRA [Suspect]
     Active Substance: ADALIMUMAB
     Indication: Crohn^s disease
     Route: 058
     Dates: start: 20110325

REACTIONS (11)
  - Intestinal anastomosis [Unknown]
  - Anorectal discomfort [Recovering/Resolving]
  - Anal abscess [Recovering/Resolving]
  - Perineal cellulitis [Recovering/Resolving]
  - Fatigue [Unknown]
  - Anal stenosis [Unknown]
  - Anastomotic ulcer [Unknown]
  - Tooth abscess [Unknown]
  - Scar [Unknown]
  - Enteritis [Unknown]
  - Colitis [Unknown]

NARRATIVE: CASE EVENT DATE: 20200801
